FAERS Safety Report 7494571-9 (Version None)
Quarter: 2011Q2

REPORT INFORMATION
  Report Type: 
  Country: None (occurrence: None)
  Receive Date: 20110520
  Receipt Date: 20110511
  Transmission Date: 20111010
  Serious: Yes (Hospitalization, Other)
  Sender: FDA-Public Use
  Company Number: PHHY2011US38510

PATIENT
  Sex: Male

DRUGS (3)
  1. ATENOLOL [Concomitant]
     Dosage: 100 MG, QD
     Route: 048
  2. GILENYA [Suspect]
     Indication: MULTIPLE SCLEROSIS
     Dosage: 0.5 MG, QD
     Route: 048
     Dates: start: 20110308
  3. LISINOPRIL [Concomitant]
     Dosage: 40 MG, QD
     Route: 048

REACTIONS (3)
  - HEART RATE DECREASED [None]
  - BLOOD PRESSURE SYSTOLIC DECREASED [None]
  - SYNCOPE [None]
